FAERS Safety Report 11069266 (Version 1)
Quarter: 2015Q2

REPORT INFORMATION
  Report Type: Spontaneous
  Country: SE (occurrence: SE)
  Receive Date: 20150427
  Receipt Date: 20150427
  Transmission Date: 20150821
  Serious: Yes (Death)
  Sender: FDA-Public Use
  Company Number: SE-TEVA-556148ISR

PATIENT
  Age: 30 Year
  Sex: Male

DRUGS (1)
  1. BUPRENORPHINE [Suspect]
     Active Substance: BUPRENORPHINE

REACTIONS (5)
  - Toxicity to various agents [Fatal]
  - Respiratory failure [Fatal]
  - Brain death [Fatal]
  - Sudden death [Fatal]
  - Cardiovascular insufficiency [Fatal]
